FAERS Safety Report 8013292-7 (Version None)
Quarter: 2011Q4

REPORT INFORMATION
  Report Type: 
  Country: None (occurrence: None)
  Receive Date: 20111223
  Receipt Date: 20111216
  Transmission Date: 20120403
  Serious: Yes (Hospitalization)
  Sender: FDA-Public Use
  Company Number: 2011AL000099

PATIENT
  Age: 51 Year
  Sex: Male

DRUGS (1)
  1. FOLOTYN [Suspect]
     Indication: T-CELL LYMPHOMA
     Dosage: 30 MG/M**2;QW;IV
     Route: 042
     Dates: start: 20101101, end: 20110216

REACTIONS (4)
  - PNEUMONITIS [None]
  - WEIGHT DECREASED [None]
  - DECREASED APPETITE [None]
  - DISEASE PROGRESSION [None]
